FAERS Safety Report 7569472 (Version 3)
Quarter: 2013Q4

REPORT INFORMATION
  Report Type: Spontaneous
  Country: US (occurrence: None)
  Receive Date: 20100722
  Receipt Date: 20131008
  Transmission Date: 20140711
  Serious: Yes (Hospitalization)
  Sender: FDA-Public Use
  Company Number: 2010022293

PATIENT
  Age: 30 Year
  Sex: Male
  Weight: 93.03 kg

DRUGS (7)
  1. PRIVIGEN [Suspect]
     Indication: TRANSPLANT REJECTION
     Dosage: (70 G INTRAVENOUS (NOT OTHERWISE SPECIFIED) )
     Route: 042
     Dates: start: 20100214, end: 20100215
  2. NEORAL [Suspect]
     Indication: KIDNEY TRANSPLANT REJECTION
     Dosage: (100 MG TWICE PER DAY ORAL)
     Route: 048
     Dates: start: 20080426, end: 20100208
  3. NEORAL [Suspect]
     Indication: KIDNEY TRANSPLANT REJECTION
     Dosage: (100 MG TWICE PER DAY ORAL)
     Route: 048
     Dates: start: 20080426, end: 20100208
  4. PROGRAF [Concomitant]
  5. STEROID TAPER (CORTICOSTEROID NOS) [Concomitant]
  6. PREDNISONE (PREDNISONE) [Concomitant]
  7. MYCOPHENOLATE (MYCOPHENOLATE MOFETIL) [Concomitant]

REACTIONS (2)
  - Headache [None]
  - Vomiting [None]
